FAERS Safety Report 5285003-X (Version None)
Quarter: 2007Q1

REPORT INFORMATION
  Report Type: 
  Country: None (occurrence: None)
  Receive Date: 20061229
  Receipt Date: 20060901
  Transmission Date: 20070707
  Serious: Yes (Other)
  Sender: FDA-Public Use
  Company Number: 2006UW17333

PATIENT
  Age: 53 Year
  Sex: Female
  Weight: 87.542 kg

DRUGS (6)
  1. CRESTOR [Suspect]
     Indication: BLOOD CHOLESTEROL INCREASED
     Dosage: 10 MG DAILY PO
     Route: 048
     Dates: start: 20060601
  2. TOPROL-XL [Concomitant]
  3. ACCUPRIL [Concomitant]
  4. PAXIL [Concomitant]
  5. WELLBUTRIN XL [Concomitant]
  6. INSULIN [Concomitant]

REACTIONS (1)
  - ALOPECIA [None]
